FAERS Safety Report 15778281 (Version 1)
Quarter: 2018Q4

REPORT INFORMATION
  Report Type: Spontaneous
  Country: US (occurrence: US)
  Receive Date: 20181231
  Receipt Date: 20181231
  Transmission Date: 20190205
  Serious: No
  Sender: FDA-Public Use
  Company Number: US-AVEDRO-AVE-2018-0228-AE

PATIENT
  Age: 21 Year
  Sex: Female

DRUGS (2)
  1. AVEDRO CROSS-LINKING PRODUCT(S), UNSPECIFIED (RIBOFLAVIN 5^-PHOSPHATE SODIUM) [Suspect]
     Active Substance: RIBOFLAVIN 5^-PHOSPHATE SODIUM
     Indication: KERATOCONUS
     Route: 047
     Dates: start: 201611, end: 201611
  2. BANDAGE CONTACT LENS [Suspect]
     Active Substance: DEVICE
     Indication: PRODUCT USED FOR UNKNOWN INDICATION
     Route: 047
     Dates: start: 201611, end: 201611

REACTIONS (3)
  - Eye pain [Unknown]
  - Eye complication associated with device [Unknown]
  - Eye disorder [Unknown]

NARRATIVE: CASE EVENT DATE: 201611
